FAERS Safety Report 5652405-9 (Version None)
Quarter: 2008Q1

REPORT INFORMATION
  Report Type: 
  Country: None (occurrence: None)
  Receive Date: 20080131
  Receipt Date: 20071105
  Transmission Date: 20080703
  Serious: No
  Sender: FDA-Public Use
  Company Number: US200711002652

PATIENT
  Age: 25 Year
  Sex: Female

DRUGS (1)
  1. BYETTA [Suspect]
     Dosage: SUBCUTANEOUS
     Route: 058
     Dates: end: 20070101

REACTIONS (1)
  - BLOOD GLUCOSE INCREASED [None]
